FAERS Safety Report 10459947 (Version 1)
Quarter: 2014Q3

REPORT INFORMATION
  Report Type: Spontaneous
  Country: DK (occurrence: DK)
  Receive Date: 20140917
  Receipt Date: 20140917
  Transmission Date: 20150326
  Serious: Yes (Disabling)
  Sender: FDA-Public Use
  Company Number: DK-WATSON-2014-19923

PATIENT
  Age: 65 Year
  Sex: Female
  Weight: 70 kg

DRUGS (2)
  1. PROLIA [Suspect]
     Active Substance: DENOSUMAB
     Indication: OSTEOPOROSIS
     Dosage: 60 MG, AT EVERY 6 MONTHS; STYRKE: 60 MG/ML
     Route: 058
     Dates: start: 20110328, end: 201302
  2. ALENDRONAT [Suspect]
     Active Substance: ALENDRONATE SODIUM
     Indication: OSTEOPOROSIS
     Dosage: UNK
     Route: 065
     Dates: end: 20110323

REACTIONS (7)
  - Infection [Unknown]
  - Fracture [Unknown]
  - Impaired healing [Unknown]
  - Osteonecrosis of jaw [Unknown]
  - Alveolar osteitis [Unknown]
  - Arthralgia [Unknown]
  - Myalgia [Unknown]

NARRATIVE: CASE EVENT DATE: 20110314
